FAERS Safety Report 4771493-5 (Version None)
Quarter: 2005Q3

REPORT INFORMATION
  Report Type: 
  Country: None (occurrence: None)
  Receive Date: 20050914
  Receipt Date: 20050914
  Transmission Date: 20060218
  Serious: Yes (Disabling)
  Sender: FDA-Public Use
  Company Number: None

PATIENT
  Age: 53 Year
  Sex: Female
  Weight: 49.8957 kg

DRUGS (6)
  1. LEVAQUIN [Suspect]
     Indication: BRONCHITIS
     Dosage: 500 MG DAILY* 250 MG DAILY
     Dates: start: 20050129, end: 20050203
  2. LEVAQUIN [Suspect]
     Indication: PYREXIA
     Dosage: 500 MG DAILY* 250 MG DAILY
     Dates: start: 20050129, end: 20050203
  3. LEVAQUIN [Suspect]
     Indication: BRONCHITIS
     Dosage: 500 MG DAILY* 250 MG DAILY
     Dates: start: 20050308, end: 20050311
  4. LEVAQUIN [Suspect]
     Indication: PYREXIA
     Dosage: 500 MG DAILY* 250 MG DAILY
     Dates: start: 20050308, end: 20050311
  5. ASPIRIN [Concomitant]
     Indication: BRONCHITIS
  6. SEROQUEL [Concomitant]

REACTIONS (28)
  - ABNORMAL DREAMS [None]
  - ANXIETY [None]
  - ASTHENIA [None]
  - BONE PAIN [None]
  - CHROMATURIA [None]
  - CONFUSIONAL STATE [None]
  - DIZZINESS [None]
  - DRUG HYPERSENSITIVITY [None]
  - FATIGUE [None]
  - HEART RATE INCREASED [None]
  - HEART RATE IRREGULAR [None]
  - INSOMNIA [None]
  - MANIA [None]
  - MUSCLE TWITCHING [None]
  - MUSCULAR WEAKNESS [None]
  - MYALGIA [None]
  - NAUSEA [None]
  - NEURALGIA [None]
  - NIGHT SWEATS [None]
  - NIGHTMARE [None]
  - PALPITATIONS [None]
  - PHOTOSENSITIVITY REACTION [None]
  - PSYCHOMOTOR HYPERACTIVITY [None]
  - RASH [None]
  - RESTLESSNESS [None]
  - SINUSITIS [None]
  - TINNITUS [None]
  - TREMOR [None]
